FAERS Safety Report 8111610-2 (Version None)
Quarter: 2012Q1

REPORT INFORMATION
  Report Type: 
  Country: None (occurrence: None)
  Receive Date: 20120202
  Receipt Date: 20120202
  Transmission Date: 20120608
  Serious: Yes (Hospitalization)
  Sender: FDA-Public Use
  Company Number: None

PATIENT
  Sex: Female
  Weight: 14 kg

DRUGS (6)
  1. METHOTREXATE [Suspect]
     Dosage: 48 MG
  2. PREDNISONE TAB [Suspect]
     Dosage: 162 MG
  3. DOXORUBICIN HCL [Suspect]
     Dosage: 39 MG
  4. PEG-L- ASPARAGINASE (K- H) [Suspect]
     Dosage: 6500 IU
  5. CYTARABINE [Suspect]
     Dosage: 166 MG
  6. VINCRISTINE SULFATE [Suspect]
     Dosage: 4 MG

REACTIONS (2)
  - BRONCHOPULMONARY ASPERGILLOSIS [None]
  - ILL-DEFINED DISORDER [None]
